FAERS Safety Report 19449913 (Version 1)
Quarter: 2021Q2

REPORT INFORMATION
  Report Type: Spontaneous
  Country: CA (occurrence: CA)
  Receive Date: 20210622
  Receipt Date: 20210622
  Transmission Date: 20210717
  Serious: Yes (Hospitalization, Other)
  Sender: FDA-Public Use
  Company Number: CA-ALLERGAN-2123401US

PATIENT
  Sex: Female

DRUGS (4)
  1. DIANEAL [Suspect]
     Active Substance: CALCIUM CHLORIDE\DEXTROSE\MAGNESIUM CHLORIDE\SODIUM CHLORIDE\SODIUM LACTATE
     Dosage: DIANEAL PD4 CAPD SOLUTION WITH 2.5% DEXTROSE AND 2.5 MEQ/L CALCIUM
     Route: 033
  2. DIANEAL [Suspect]
     Active Substance: CALCIUM CHLORIDE\DEXTROSE\MAGNESIUM CHLORIDE\SODIUM CHLORIDE\SODIUM LACTATE
     Indication: PERITONEAL DIALYSIS
     Dosage: DIANEAL PD4 CAPD SOLUTION WITH 1.5% DEXTROSE AND 2.5 MEQ/L CALCIUM
     Route: 033
  3. EXTRANEAL [Suspect]
     Active Substance: CALCIUM CHLORIDE\ICODEXTRIN\MAGNESIUM CHLORIDE\SODIUM CHLORIDE\SODIUM LACTATE
     Indication: PERITONEAL DIALYSIS
     Dosage: UNK
     Route: 033
  4. ESCITALOPRAM OXALATE ? BP [Suspect]
     Active Substance: ESCITALOPRAM OXALATE
     Indication: ANXIETY
     Dosage: UNK
     Route: 065

REACTIONS (15)
  - Post concussion syndrome [Recovered/Resolved]
  - Pain [Recovered/Resolved]
  - Confusional state [Recovered/Resolved]
  - Anxiety [Recovered/Resolved]
  - Tremor [Recovered/Resolved]
  - Cardiac disorder [Recovered/Resolved]
  - Mental impairment [Recovered/Resolved]
  - Fall [Recovered/Resolved]
  - Mass [Recovered/Resolved]
  - Contusion [Recovered/Resolved]
  - Head injury [Recovered/Resolved]
  - Syncope [Recovered/Resolved]
  - Coronary artery occlusion [Recovered/Resolved]
  - Haemorrhage [Recovered/Resolved]
  - Hypotension [Recovered/Resolved]
